FAERS Safety Report 4439430-0 (Version None)
Quarter: 2004Q3

REPORT INFORMATION
  Report Type: 
  Country: None (occurrence: None)
  Receive Date: 20040728
  Receipt Date: 20040317
  Transmission Date: 20050211
  Serious: No
  Sender: FDA-Public Use
  Company Number: USA040362319

PATIENT
  Age: 35 Year
  Sex: Male

DRUGS (1)
  1. STRATTERA [Suspect]
     Dosage: 80 MG DAY
     Dates: start: 20040305

REACTIONS (4)
  - ERECTILE DYSFUNCTION [None]
  - EYE PAIN [None]
  - INSOMNIA [None]
  - LIBIDO DECREASED [None]
